FAERS Safety Report 8930422 (Version 1)
Quarter: 2012Q4

REPORT INFORMATION
  Report Type: 
  Country: US (occurrence: US)
  Receive Date: 20121128
  Receipt Date: 20121128
  Transmission Date: 20130627
  Serious: Yes (Other)
  Sender: FDA-Public Use
  Company Number: US-BAYER-2012-121961

PATIENT

DRUGS (2)
  1. BAYER GENUINE ASPIRIN ORIGINAL STRENGTH [Suspect]
  2. INHALER [Concomitant]

REACTIONS (8)
  - Urticaria [None]
  - Urticaria [None]
  - Pruritus generalised [None]
  - Oropharyngeal pain [None]
  - Drug hypersensitivity [None]
  - Thinking abnormal [None]
  - Impaired reasoning [None]
  - Pharyngeal oedema [None]
